FAERS Safety Report 16946784 (Version 9)
Quarter: 2021Q3

REPORT INFORMATION
  Report Type: Spontaneous
  Country: US (occurrence: US)
  Receive Date: 20191022
  Receipt Date: 20210716
  Transmission Date: 20211014
  Serious: Yes (Hospitalization, Other)
  Sender: FDA-Public Use
  Company Number: US-PFIZER INC-2019454096

PATIENT
  Age: 66 Year
  Sex: Female
  Weight: 105 kg

DRUGS (6)
  1. LYRICA [Suspect]
     Active Substance: PREGABALIN
     Indication: NEUROPATHY PERIPHERAL
     Dosage: 150 MG, 2X/DAY
     Dates: start: 2006
  2. LYRICA [Suspect]
     Active Substance: PREGABALIN
     Dosage: 500 MG, UNK
  3. LYRICA [Suspect]
     Active Substance: PREGABALIN
     Dosage: 200 MG, 2X/DAY
     Route: 048
     Dates: start: 2015
  4. LYRICA [Suspect]
     Active Substance: PREGABALIN
     Dosage: 200 MG, 2X/DAY
  5. LYRICA [Suspect]
     Active Substance: PREGABALIN
     Dosage: UNK
  6. LYRICA [Suspect]
     Active Substance: PREGABALIN
     Dosage: UNK
     Dates: start: 2018

REACTIONS (5)
  - Back disorder [Unknown]
  - Spinal cord injury lumbar [Unknown]
  - Therapeutic product effect incomplete [Recovered/Resolved]
  - Intervertebral disc degeneration [Unknown]
  - Lumbar spinal stenosis [Unknown]

NARRATIVE: CASE EVENT DATE: 2016
